FAERS Safety Report 6663701-0 (Version None)
Quarter: 2010Q2

REPORT INFORMATION
  Report Type: 
  Country: None (occurrence: None)
  Receive Date: 20100401
  Receipt Date: 20100329
  Transmission Date: 20101027
  Serious: Yes (Hospitalization)
  Sender: FDA-Public Use
  Company Number: FR-ROCHE-693982

PATIENT
  Sex: Male

DRUGS (6)
  1. RIVOTRIL [Suspect]
     Indication: PAIN
     Route: 048
     Dates: start: 20090801, end: 20090801
  2. NEURONTIN [Concomitant]
     Indication: SCIATICA
     Route: 048
     Dates: start: 20090801, end: 20091001
  3. BRISTOPEN [Concomitant]
     Route: 042
     Dates: start: 20090815, end: 20090824
  4. CANCIDAS [Concomitant]
     Indication: CANDIDIASIS
     Dates: start: 20090815, end: 20090824
  5. SUBUTEX [Concomitant]
     Dates: start: 20090801, end: 20090801
  6. VITAMIN B1/VITAMIN B6 [Concomitant]
     Dates: start: 20090801, end: 20090801

REACTIONS (2)
  - CARDIAC FAILURE [None]
  - HEPATIC ENCEPHALOPATHY [None]
